FAERS Safety Report 17051346 (Version 1)
Quarter: 2019Q4

REPORT INFORMATION
  Report Type: Spontaneous
  Country: SE (occurrence: SE)
  Receive Date: 20191120
  Receipt Date: 20191120
  Transmission Date: 20200122
  Serious: Yes (Hospitalization)
  Sender: FDA-Public Use
  Company Number: SE-ASTRAZENECA-2019SF61290

PATIENT
  Age: 53 Year
  Sex: Female

DRUGS (4)
  1. PARAFLEX [Suspect]
     Active Substance: CHLORZOXAZONE
     Dosage: AN AMOUNT OF 100
     Route: 065
     Dates: start: 20180524, end: 20180524
  2. TAVEGYL [Suspect]
     Active Substance: CLEMASTINE FUMARATE
     Route: 065
     Dates: start: 20180524, end: 20180524
  3. OMEPRAZOLE. [Suspect]
     Active Substance: OMEPRAZOLE
     Route: 048
     Dates: start: 20180524, end: 20180524
  4. LERGIGAN (PROMETHAZINE HYDROCHLORIDE) [Suspect]
     Active Substance: PROMETHAZINE HYDROCHLORIDE
     Dosage: AT LEAST HALF A JAR
     Route: 048
     Dates: start: 20180524, end: 20180524

REACTIONS (3)
  - Intentional self-injury [Unknown]
  - Intentional overdose [Unknown]
  - Loss of consciousness [Unknown]

NARRATIVE: CASE EVENT DATE: 20180524
